FAERS Safety Report 8146366-0 (Version None)
Quarter: 2012Q1

REPORT INFORMATION
  Report Type: 
  Country: None (occurrence: None)
  Receive Date: 20120217
  Receipt Date: 20110831
  Transmission Date: 20120608
  Serious: No
  Sender: FDA-Public Use
  Company Number: US-ABBOTT-11P-163-0850599-00

PATIENT
  Sex: Male
  Weight: 99.88 kg

DRUGS (3)
  1. DIOVAN HCT [Concomitant]
     Indication: PRODUCT USED FOR UNKNOWN INDICATION
     Dosage: 320-25
  2. SIMCOR [Suspect]
     Indication: BLOOD CHOLESTEROL
     Dosage: 500/40MG
     Dates: start: 20101101, end: 20110830
  3. SIMCOR [Suspect]
     Dosage: 1000/40MG WILL START TONIGHT
     Dates: start: 20110831

REACTIONS (2)
  - FLUSHING [None]
  - PAIN IN EXTREMITY [None]
